FAERS Safety Report 6974654-X (Version None)
Quarter: 2010Q3

REPORT INFORMATION
  Report Type: 
  Country: None (occurrence: None)
  Receive Date: 20100909
  Receipt Date: 20100909
  Transmission Date: 20110219
  Serious: Yes (Hospitalization)
  Sender: FDA-Public Use
  Company Number: None

PATIENT
  Age: 54 Year
  Sex: Male

DRUGS (1)
  1. TOPOTECAN [Suspect]
     Dosage: 2.7 MG OTHER IV
     Route: 042
     Dates: start: 20100528

REACTIONS (5)
  - COUGH [None]
  - DYSPNOEA [None]
  - PYREXIA [None]
  - THROMBOCYTOPENIA [None]
  - WHEEZING [None]
